FAERS Safety Report 5226788-8 (Version None)
Quarter: 2007Q1

REPORT INFORMATION
  Report Type: 
  Country: None (occurrence: None)
  Receive Date: 20070130
  Receipt Date: 20070122
  Transmission Date: 20070707
  Serious: Yes (Hospitalization)
  Sender: FDA-Public Use
  Company Number: TAP2006Q01017

PATIENT
  Age: 86 Year
  Sex: Male

DRUGS (12)
  1. LUPRON DEPOT-4 [Suspect]
     Indication: PROSTATE CANCER
     Dosage: 30 MG, 1 IN 4 M, INTRAMUSCULAR
     Route: 042
     Dates: start: 20060201
  2. COMBIVENT (BREVA) [Concomitant]
  3. RISPERDAL [Concomitant]
  4. FLORINEF [Concomitant]
  5. NEXIUM [Concomitant]
  6. IMDUR [Concomitant]
  7. LANOXIN [Concomitant]
  8. TARO-WARFARIN (WARFARIN SODIUM) [Concomitant]
  9. CASODEX [Concomitant]
  10. APO-FUROSEMIDE (FUROSEMIDE) [Concomitant]
  11. APO-BISACODYL (BISACODYL) [Concomitant]
  12. ASPIRIN [Concomitant]

REACTIONS (5)
  - ABASIA [None]
  - ASTHENIA [None]
  - CEREBROVASCULAR ACCIDENT [None]
  - DYSPNOEA [None]
  - MEMORY IMPAIRMENT [None]
